FAERS Safety Report 7276442-6 (Version None)
Quarter: 2011Q1

REPORT INFORMATION
  Report Type: 
  Country: None (occurrence: None)
  Receive Date: 20110131
  Receipt Date: 20110112
  Transmission Date: 20110831
  Serious: Yes (Other)
  Sender: FDA-Public Use
  Company Number: 2011SP002642

PATIENT
  Age: 38 Year
  Sex: Female
  Weight: 73 kg

DRUGS (1)
  1. CERAZETTE (DESOGESTREL /00754001/) [Suspect]
     Indication: CONTRACEPTION
     Dosage: PO
     Route: 048
     Dates: start: 20101025, end: 20110106

REACTIONS (6)
  - SWELLING FACE [None]
  - BREAST SWELLING [None]
  - METRORRHAGIA [None]
  - OEDEMA PERIPHERAL [None]
  - MENSTRUATION DELAYED [None]
  - WEIGHT INCREASED [None]
